FAERS Safety Report 8508650-8 (Version None)
Quarter: 2012Q3

REPORT INFORMATION
  Report Type: 
  Country: None (occurrence: None)
  Receive Date: 20120713
  Receipt Date: 20120710
  Transmission Date: 20120928
  Serious: Yes (Congenital Anomaly)
  Sender: FDA-Public Use
  Company Number: US-GILEAD-2012-0057756

PATIENT
  Sex: Male

DRUGS (6)
  1. BISMUTH SUBGALLATE [Concomitant]
     Dosage: 60 MG, UNK
     Route: 064
     Dates: start: 20110405, end: 20110416
  2. BACITRACIN W/POLYMYXIN B SULFATE [Concomitant]
     Dosage: UNK
     Route: 064
     Dates: start: 20110405, end: 20110416
  3. EMTRICITABINE/TENOFOVIR DISOPROXIL FUMARATE [Suspect]
     Indication: PROPHYLAXIS AGAINST HIV INFECTION
     Dosage: UNK
     Route: 064
     Dates: start: 20081210, end: 20110428
  4. BISMUTH OXIDE [Concomitant]
     Dosage: 24 MG, UNK
     Route: 064
     Dates: start: 20110405, end: 20110416
  5. ZINC OXIDE [Concomitant]
     Dosage: 29 MG, UNK
     Route: 064
     Dates: start: 20110405, end: 20110416
  6. FOLIC ACID [Concomitant]
     Dosage: UNK
     Route: 064
     Dates: start: 20110511

REACTIONS (1)
  - TALIPES [None]
